FAERS Safety Report 18951217 (Version 3)
Quarter: 2021Q1

REPORT INFORMATION
  Report Type: Spontaneous
  Country: JP (occurrence: JP)
  Receive Date: 20210228
  Receipt Date: 20210316
  Transmission Date: 20210420
  Serious: Yes (Hospitalization)
  Sender: FDA-Public Use
  Company Number: JP-ROCHE-2777680

PATIENT
  Age: 47 Year
  Sex: Male

DRUGS (3)
  1. ACTEMRA [Suspect]
     Active Substance: TOCILIZUMAB
     Indication: TAKAYASU^S ARTERITIS
     Dosage: DOSAGE IS UNCERTAIN.?LAST DOSE ON 30/JAN/2021
     Route: 058
     Dates: start: 20200710
  2. PREDNISOLONE. [Suspect]
     Active Substance: PREDNISOLONE
     Indication: PRODUCT USED FOR UNKNOWN INDICATION
     Route: 065
  3. PREDNISOLONE. [Suspect]
     Active Substance: PREDNISOLONE
     Route: 065

REACTIONS (4)
  - Hypofibrinogenaemia [Not Recovered/Not Resolved]
  - Shock haemorrhagic [Not Recovered/Not Resolved]
  - Haemorrhage [Unknown]
  - Haematoma muscle [Unknown]

NARRATIVE: CASE EVENT DATE: 20210206
